FAERS Safety Report 17324915 (Version 1)
Quarter: 2020Q1

REPORT INFORMATION
  Report Type: Spontaneous
  Country: US (occurrence: US)
  Receive Date: 20200125
  Receipt Date: 20200125
  Transmission Date: 20200409
  Serious: Yes (Life-Threatening, Hospitalization, Other)
  Sender: FDA-Public Use
  Company Number: None

PATIENT
  Age: 62 Year
  Sex: Male
  Weight: 83.25 kg

DRUGS (2)
  1. VERSED [Suspect]
     Active Substance: MIDAZOLAM HYDROCHLORIDE
     Indication: ANAESTHESIA
     Dates: start: 20200112, end: 20200112
  2. TIROSINT [Concomitant]
     Active Substance: LEVOTHYROXINE SODIUM

REACTIONS (13)
  - Amnesia [None]
  - Oxygen saturation decreased [None]
  - Aspiration [None]
  - Agitation [None]
  - Unresponsive to stimuli [None]
  - Choking [None]
  - Hiccups [None]
  - Pyrexia [None]
  - Aggression [None]
  - Headache [None]
  - Sleep terror [None]
  - Cough [None]
  - Miosis [None]

NARRATIVE: CASE EVENT DATE: 20200112
